FAERS Safety Report 15368106 (Version 3)
Quarter: 2019Q1

REPORT INFORMATION
  Report Type: Spontaneous
  Country: US (occurrence: US)
  Receive Date: 20180910
  Receipt Date: 20190207
  Transmission Date: 20190417
  Serious: Yes (Hospitalization)
  Sender: FDA-Public Use
  Company Number: US-IMPAX LABORATORIES, INC-2018-IPXL-02853

PATIENT
  Age: 73 Year
  Sex: Female
  Weight: 77 kg

DRUGS (3)
  1. CARBIDOPA-LEVODOPA ER [Suspect]
     Active Substance: CARBIDOPA\LEVODOPA
     Indication: PARKINSON^S DISEASE
     Dosage: UNK
     Route: 065
  2. RYTARY [Suspect]
     Active Substance: CARBIDOPA\LEVODOPA
     Dosage: 71.25/285 MG, THREE CAPSULES, THREE TIMES DAILY
     Route: 048
  3. RYTARY [Suspect]
     Active Substance: CARBIDOPA\LEVODOPA
     Indication: PARKINSON^S DISEASE
     Dosage: 23.75/95 MG, THREE CAPSULES, THREE TIMES A DAY
     Route: 048
     Dates: start: 201808

REACTIONS (7)
  - Pulmonary congestion [Unknown]
  - Memory impairment [Not Recovered/Not Resolved]
  - Pneumonia [Unknown]
  - Lethargy [Not Recovered/Not Resolved]
  - Aspiration [Unknown]
  - Choking [Unknown]
  - Therapy cessation [Unknown]

NARRATIVE: CASE EVENT DATE: 2018
